FAERS Safety Report 10581733 (Version 1)
Quarter: 2014Q4

REPORT INFORMATION
  Report Type: Spontaneous
  Country: GB (occurrence: GB)
  Receive Date: 20141113
  Receipt Date: 20141113
  Transmission Date: 20150529
  Serious: Yes (Hospitalization)
  Sender: FDA-Public Use
  Company Number: PHHY2014GB142724

PATIENT
  Age: 25 Year
  Sex: Male

DRUGS (2)
  1. FLECAINIDE [Suspect]
     Active Substance: FLECAINIDE
     Indication: ATRIAL FIBRILLATION
     Dosage: 150 MG, UNK
     Route: 065
  2. METOPROLOL [Suspect]
     Active Substance: METOPROLOL
     Indication: ATRIAL FIBRILLATION
     Dosage: 5 MG
     Route: 042

REACTIONS (7)
  - Brugada syndrome [Recovered/Resolved]
  - Bundle branch block right [Recovered/Resolved]
  - Drug ineffective [Unknown]
  - Ventricular tachycardia [Recovered/Resolved]
  - Pallor [Recovered/Resolved]
  - Electrocardiogram ST segment elevation [Recovered/Resolved]
  - Ventricular fibrillation [Recovered/Resolved]
